FAERS Safety Report 7655735-4 (Version None)
Quarter: 2011Q3

REPORT INFORMATION
  Report Type: 
  Country: None (occurrence: None)
  Receive Date: 20110804
  Receipt Date: 20110725
  Transmission Date: 20111222
  Serious: Yes (Hospitalization)
  Sender: FDA-Public Use
  Company Number: FR-NOVOPROD-332600

PATIENT

DRUGS (6)
  1. NALADOR [Concomitant]
     Dosage: UNK
     Route: 042
     Dates: start: 20100519, end: 20100519
  2. CERAZETTE                          /00011001/ [Concomitant]
     Dosage: UNK
     Route: 048
     Dates: start: 20100522
  3. NOVOSEVEN [Suspect]
     Indication: PRODUCT USED FOR UNKNOWN INDICATION
     Dosage: 1 VIAL 2ML
     Route: 042
     Dates: start: 20100520, end: 20100520
  4. CLOTTAGEN [Concomitant]
     Dosage: UNK
     Route: 042
     Dates: start: 20100519, end: 20100519
  5. NOVOSEVEN [Suspect]
     Dosage: 1 VIAL 5ML
     Route: 042
     Dates: start: 20100520, end: 20100520
  6. RESTORVOL [Concomitant]
     Dosage: UNK
     Route: 042
     Dates: start: 20100520, end: 20100520

REACTIONS (1)
  - NECROSIS ISCHAEMIC [None]
